FAERS Safety Report 16673585 (Version 1)
Quarter: 2019Q3

REPORT INFORMATION
  Report Type: Spontaneous
  Country: US (occurrence: US)
  Receive Date: 20190806
  Receipt Date: 20190806
  Transmission Date: 20191004
  Serious: Yes (Hospitalization)
  Sender: FDA-Public Use
  Company Number: US-PARI RESPIRATORY EQUIPMENT, INC.-2019PAR00069

PATIENT
  Age: 13 Year
  Sex: Female
  Weight: 39.91 kg

DRUGS (8)
  1. KITABIS PAK [Suspect]
     Active Substance: TOBRAMYCIN
     Indication: DRUG THERAPY
     Dosage: 300 MG, 2X/DAY (28 DAYS ON AND 28 DAYS OFF)
     Dates: start: 20190208
  2. ADVAIR HFA [Concomitant]
     Active Substance: FLUTICASONE PROPIONATE\SALMETEROL XINAFOATE
  3. SODIUM CHLORIDE. [Concomitant]
     Active Substance: SODIUM CHLORIDE
  4. MONTELUKAST SODIUM. [Concomitant]
     Active Substance: MONTELUKAST SODIUM
  5. AZITHROMYCIN ANHYDROUS. [Concomitant]
     Active Substance: AZITHROMYCIN ANHYDROUS
  6. PROAIR HFA [Concomitant]
     Active Substance: ALBUTEROL SULFATE
  7. PULMOZYME [Concomitant]
     Active Substance: DORNASE ALFA
  8. QVAR REDIHALER [Concomitant]
     Active Substance: BECLOMETHASONE DIPROPIONATE

REACTIONS (1)
  - Adenotonsillectomy [Recovered/Resolved]

NARRATIVE: CASE EVENT DATE: 20190620
